FAERS Safety Report 7903307-6 (Version None)
Quarter: 2011Q4

REPORT INFORMATION
  Report Type: 
  Country: None (occurrence: None)
  Receive Date: 20111107
  Receipt Date: 20111101
  Transmission Date: 20120403
  Serious: Yes (Death, Hospitalization, Other)
  Sender: FDA-Public Use
  Company Number: 2008-178179-NL

PATIENT
  Age: 29 Year
  Sex: Female
  Weight: 106.1417 kg

DRUGS (1)
  1. NUVARING [Suspect]
     Indication: CONTRACEPTION
     Dosage: 1 DF;VAG
     Route: 067
     Dates: start: 20060628, end: 20060901

REACTIONS (25)
  - INTRACRANIAL VENOUS SINUS THROMBOSIS [None]
  - VOMITING [None]
  - CONTUSION [None]
  - ANTIPHOSPHOLIPID SYNDROME [None]
  - CONFUSIONAL STATE [None]
  - LIGAMENT SPRAIN [None]
  - SYNCOPE [None]
  - CARDIAC ARREST [None]
  - ANKLE FRACTURE [None]
  - CYANOSIS [None]
  - MUSCLE SPASMS [None]
  - HEADACHE [None]
  - ROAD TRAFFIC ACCIDENT [None]
  - ANXIETY [None]
  - GRAND MAL CONVULSION [None]
  - BRAIN OEDEMA [None]
  - RESPIRATORY DISTRESS [None]
  - RESPIRATORY ARREST [None]
  - DEEP VEIN THROMBOSIS [None]
  - CEREBROVASCULAR ACCIDENT [None]
  - LOSS OF CONSCIOUSNESS [None]
  - WEIGHT INCREASED [None]
  - ACUTE MYOCARDIAL INFARCTION [None]
  - TREMOR [None]
  - HYPERCOAGULATION [None]
